FAERS Safety Report 13174344 (Version 4)
Quarter: 2017Q1

REPORT INFORMATION
  Report Type: Spontaneous
  Country: CH (occurrence: CH)
  Receive Date: 20170201
  Receipt Date: 20170314
  Transmission Date: 20170428
  Serious: Yes (Death, Other)
  Sender: FDA-Public Use
  Company Number: CH-SA-2017SA014923

PATIENT
  Age: 76 Year
  Sex: Female
  Weight: 52 kg

DRUGS (3)
  1. CEREZYME [Suspect]
     Active Substance: IMIGLUCERASE
     Indication: GAUCHER^S DISEASE TYPE I
     Dosage: FREQUENCY: EVERY 3 WEEKS DOSE:84.61 UNIT(S)/KILOGRAM BODYWEIGHT
     Route: 042
     Dates: start: 20000620, end: 20161206
  2. METOPROLOL. [Concomitant]
     Active Substance: METOPROLOL
     Dates: start: 2016, end: 20170120
  3. REBALANCE [Concomitant]
     Active Substance: HYPERICUM PERFORATUM
     Indication: DEPRESSION
     Route: 048
     Dates: start: 201510, end: 201612

REACTIONS (4)
  - Hypertensive cardiomyopathy [Unknown]
  - Dementia [Unknown]
  - Off label use [Unknown]
  - Cardiac failure [Fatal]

NARRATIVE: CASE EVENT DATE: 200711
